FAERS Safety Report 9193286 (Version 1)
Quarter: 2013Q1

REPORT INFORMATION
  Report Type: Spontaneous
  Country: US (occurrence: None)
  Receive Date: 20130325
  Receipt Date: 20130325
  Transmission Date: 20140127
  Serious: Yes (Hospitalization, Other)
  Sender: FDA-Public Use
  Company Number: None

PATIENT
  Age: 51 Year
  Sex: Female
  Weight: 93.9 kg

DRUGS (1)
  1. LIVALO [Suspect]
     Indication: LIPIDS INCREASED
     Route: 048
     Dates: start: 20121115, end: 20130214

REACTIONS (3)
  - Hepatic steatosis [None]
  - Abdominal pain [None]
  - Fatigue [None]
